FAERS Safety Report 10412539 (Version 1)
Quarter: 2014Q2

REPORT INFORMATION
  Report Type: Spontaneous
  Country: US (occurrence: None)
  Receive Date: 20140604
  Receipt Date: 20140604
  Transmission Date: 20141212
  Serious: Yes (Hospitalization)
  Sender: FDA-Public Use
  Company Number: 163-POMAL-14033056

PATIENT
  Age: 77 Year
  Sex: Male

DRUGS (4)
  1. POMALYST (POMALIDOMIDE) (4 MILLIGRAM, CAPSULES) [Suspect]
     Indication: PLASMA CELL LEUKAEMIA
     Dosage: 21 IN 21 D
     Route: 048
     Dates: start: 20140120
  2. HYDROCODONE/ACETAMINOPHEN (REMEDEINE) [Concomitant]
  3. DEXAMETHASONE [Concomitant]
  4. LEVOTHYROXINE SODIUM [Concomitant]

REACTIONS (1)
  - Blood calcium increased [None]
